FAERS Safety Report 7378096-7 (Version None)
Quarter: 2011Q1

REPORT INFORMATION
  Report Type: 
  Country: None (occurrence: None)
  Receive Date: 20110317
  Receipt Date: 20110309
  Transmission Date: 20110831
  Serious: Yes (Life-Threatening, Other)
  Sender: FDA-Public Use
  Company Number: DSA_44152_2010

PATIENT
  Sex: Female

DRUGS (6)
  1. LEXAPRO [Concomitant]
  2. NUVIGIL [Concomitant]
  3. PREDNISONE [Concomitant]
  4. XENAZINE [Suspect]
     Indication: TARDIVE DYSKINESIA
     Dosage: (12.5 MG TID ORAL), (12.5 MG QD ORAL)
     Route: 048
     Dates: start: 20100801
  5. LORTAB [Concomitant]
  6. CARDIOVASCULAR SYSTEM DRUGS [Concomitant]

REACTIONS (2)
  - DEPRESSION [None]
  - NEOPLASM MALIGNANT [None]
